FAERS Safety Report 25829686 (Version 1)
Quarter: 2025Q3

REPORT INFORMATION
  Report Type: Spontaneous
  Country: AE (occurrence: AE)
  Receive Date: 20250922
  Receipt Date: 20250922
  Transmission Date: 20251020
  Serious: Yes (Other)
  Sender: AMGEN
  Company Number: AE-AMGEN-ARESP2025186636

PATIENT

DRUGS (1)
  1. UPLIZNA [Suspect]
     Active Substance: INEBILIZUMAB-CDON
     Indication: Product used for unknown indication
     Route: 040

REACTIONS (1)
  - Hypokalaemia [Unknown]
